FAERS Safety Report 9743154 (Version 1)
Quarter: 2013Q4

REPORT INFORMATION
  Report Type: Spontaneous
  Country: US (occurrence: US)
  Receive Date: 20131210
  Receipt Date: 20131210
  Transmission Date: 20140711
  Serious: No
  Sender: FDA-Public Use
  Company Number: US-GILEAD-2009-0024375

PATIENT
  Sex: Female
  Weight: 77.11 kg

DRUGS (14)
  1. LETAIRIS [Suspect]
     Indication: PULMONARY ARTERIAL HYPERTENSION
     Route: 048
     Dates: start: 20090906
  2. TADALAFIL [Concomitant]
  3. COUMADIN [Concomitant]
  4. LASIX [Concomitant]
  5. LYRICA [Concomitant]
  6. TRAZODONE [Concomitant]
  7. DEPAKOTE [Concomitant]
  8. VALIUM [Concomitant]
  9. HYDROCODONE-APAP [Concomitant]
  10. FENTANYL [Concomitant]
  11. MORPHINE [Concomitant]
  12. PHENERGAN [Concomitant]
  13. PROTONIX [Concomitant]
  14. ASPIRIN [Concomitant]

REACTIONS (2)
  - Local swelling [Unknown]
  - Headache [Unknown]
